FAERS Safety Report 4823952-4 (Version None)
Quarter: 2005Q4

REPORT INFORMATION
  Report Type: 
  Country: None (occurrence: None)
  Receive Date: 20051109
  Receipt Date: 20051028
  Transmission Date: 20060501
  Serious: Yes (Other)
  Sender: FDA-Public Use
  Company Number: IE-JNJFOC-20051004357

PATIENT
  Sex: Female
  Weight: 26 kg

DRUGS (2)
  1. CONCERTA [Suspect]
     Route: 048
  2. RITALIN [Suspect]
     Dosage: COMBINED THERAPY WITH CONCERTA, TAKEN IN THE EVENING.
     Route: 065

REACTIONS (2)
  - IRRITABILITY [None]
  - MORBID THOUGHTS [None]
